FAERS Safety Report 5066830-0 (Version None)
Quarter: 2006Q3

REPORT INFORMATION
  Report Type: 
  Country: None (occurrence: None)
  Receive Date: 20060726
  Receipt Date: 20060718
  Transmission Date: 20061208
  Serious: Yes (Death, Hospitalization)
  Sender: FDA-Public Use
  Company Number: US-2006-014930

PATIENT
  Age: 53 Year
  Sex: Female

DRUGS (1)
  1. BETAPACE [Suspect]
     Dosage: ORAL
     Route: 048

REACTIONS (5)
  - BRAIN DEATH [None]
  - CARDIAC ARREST [None]
  - HYPERTENSION [None]
  - HYPOXIC ENCEPHALOPATHY [None]
  - PULMONARY OEDEMA [None]
